FAERS Safety Report 5523541-2 (Version None)
Quarter: 2007Q4

REPORT INFORMATION
  Report Type: 
  Country: None (occurrence: None)
  Receive Date: 20071121
  Receipt Date: 20071111
  Transmission Date: 20080405
  Serious: Yes (Hospitalization)
  Sender: FDA-Public Use
  Company Number: GB-JNJFOC-20071105652

PATIENT
  Sex: Female

DRUGS (2)
  1. TRAMACET [Suspect]
     Route: 048
  2. TRAMACET [Suspect]
     Indication: DRUG USE FOR UNKNOWN INDICATION
     Route: 048

REACTIONS (7)
  - DIZZINESS [None]
  - DRY MOUTH [None]
  - FALL [None]
  - FEELING DRUNK [None]
  - HYPERHIDROSIS [None]
  - MALAISE [None]
  - SENSATION OF HEAVINESS [None]
